APPROVED DRUG PRODUCT: UNIPEN
Active Ingredient: NAFCILLIN SODIUM
Strength: EQ 500MG BASE
Dosage Form/Route: TABLET;ORAL
Application: N050462 | Product #001
Applicant: WYETH AYERST LABORATORIES
Approved: Approved Prior to Jan 1, 1982 | RLD: No | RS: No | Type: DISCN